FAERS Safety Report 4721372-4 (Version None)
Quarter: 2005Q3

REPORT INFORMATION
  Report Type: 
  Country: None (occurrence: None)
  Receive Date: 20050721
  Receipt Date: 20040726
  Transmission Date: 20060218
  Serious: No
  Sender: FDA-Public Use
  Company Number: US-BRISTOL-MYERS SQUIBB COMPANY-12651147

PATIENT
  Age: 82 Year
  Sex: Male
  Weight: 82 kg

DRUGS (4)
  1. COUMADIN [Suspect]
     Indication: HEART RATE IRREGULAR
     Dosage: BEGAN 5 MG DAILY ABOUT 1 MONTH AGO, THEN DOSE DECREASED TO 2.5 MG DAILY-2 WEEKS AGO.
     Route: 048
  2. DIGOXIN [Concomitant]
  3. LESCOL [Concomitant]
  4. MULTI-VITAMIN [Concomitant]

REACTIONS (3)
  - CYANOSIS [None]
  - FEELING HOT [None]
  - PARAESTHESIA [None]
